FAERS Safety Report 9206137 (Version 1)
Quarter: 2013Q1

REPORT INFORMATION
  Report Type: Spontaneous
  Country: US (occurrence: None)
  Receive Date: 20120709
  Receipt Date: 20120709
  Transmission Date: 20140127
  Serious: Yes (Disabling, Other)
  Sender: FDA-Public Use
  Company Number: PHHY2010US35926

PATIENT
  Age: 65 Year
  Sex: Female
  Weight: 158 kg

DRUGS (1)
  1. GLEEVEC (IMATINIB) [Suspect]
     Indication: CHRONIC MYELOID LEUKAEMIA
     Route: 048
     Dates: start: 200812

REACTIONS (5)
  - Drug hypersensitivity [None]
  - Drug ineffective [None]
  - White blood cell count increased [None]
  - Rash [None]
  - Skin discolouration [None]
